FAERS Safety Report 9676532 (Version 2)
Quarter: 2013Q4

REPORT INFORMATION
  Report Type: Report from Study
  Country: JP (occurrence: JP)
  Receive Date: 20131107
  Receipt Date: 20131126
  Transmission Date: 20140711
  Serious: Yes (Hospitalization)
  Sender: FDA-Public Use
  Company Number: JP-B.I. PHARMACEUTICALS,INC./RIDGEFIELD-2013-BI-36518NB

PATIENT
  Age: 69 Year
  Sex: Male

DRUGS (9)
  1. PRAZAXA [Suspect]
     Indication: CEREBROVASCULAR ACCIDENT PROPHYLAXIS
     Dosage: 220 MG
     Route: 048
     Dates: start: 20120501, end: 20131008
  2. PLETAAL [Suspect]
     Indication: CEREBROVASCULAR ACCIDENT PROPHYLAXIS
     Dosage: 100 MG
     Route: 048
     Dates: end: 20131008
  3. AMLODIPINE [Concomitant]
     Indication: HYPERTENSION
     Dosage: 5 MG
     Route: 048
  4. TAKEPRON [Concomitant]
     Indication: GASTROOESOPHAGEAL REFLUX DISEASE
     Dosage: 15 MG
     Route: 048
  5. BEZATOL SR [Concomitant]
     Indication: DYSLIPIDAEMIA
     Dosage: 200 MG
     Route: 048
  6. BASEN [Concomitant]
     Indication: DIABETES MELLITUS
     Dosage: 0.9 MG
     Route: 048
  7. EXCEGRAN [Concomitant]
     Indication: EPILEPSY
     Dosage: 200 MG
     Route: 048
  8. ALEVIATIN [Concomitant]
     Indication: EPILEPSY
     Dosage: 200 MG
     Route: 048
  9. MICARDIS [Concomitant]
     Dosage: 60 MG
     Route: 048

REACTIONS (3)
  - Gastrointestinal haemorrhage [Not Recovered/Not Resolved]
  - Rectal cancer [Not Recovered/Not Resolved]
  - Gastric cancer [Not Recovered/Not Resolved]
